FAERS Safety Report 10408328 (Version 4)
Quarter: 2014Q4

REPORT INFORMATION
  Report Type: Report from Study
  Country: US (occurrence: US)
  Receive Date: 20140826
  Receipt Date: 20141008
  Transmission Date: 20150528
  Serious: Yes (Death, Other)
  Sender: FDA-Public Use
  Company Number: US-BIOGENIDEC-2014BI084093

PATIENT
  Age: 63 Year
  Sex: Female

DRUGS (1)
  1. AVONEX [Suspect]
     Active Substance: INTERFERON BETA-1A
     Indication: MULTIPLE SCLEROSIS
     Route: 030
     Dates: start: 20040914, end: 201403

REACTIONS (5)
  - Type 1 diabetes mellitus [Unknown]
  - Myocardial infarction [Unknown]
  - Arteriosclerosis [Fatal]
  - Multiple sclerosis [Unknown]
  - Dementia [Unknown]

NARRATIVE: CASE EVENT DATE: 201401
